FAERS Safety Report 24264259 (Version 1)
Quarter: 2024Q3

REPORT INFORMATION
  Report Type: Spontaneous
  Country: US (occurrence: US)
  Receive Date: 20240829
  Receipt Date: 20240829
  Transmission Date: 20241017
  Serious: No
  Sender: BAYER
  Company Number: US-BAYER-2024A121231

PATIENT

DRUGS (5)
  1. CLARITIN ALLERGY [Suspect]
     Active Substance: LORATADINE
     Indication: Rhinitis allergic
     Dosage: UNK
  2. CLARITIN ALLERGY [Suspect]
     Active Substance: LORATADINE
     Indication: Throat irritation
  3. CLARITIN ALLERGY [Suspect]
     Active Substance: LORATADINE
     Indication: Sneezing
  4. CLARITIN ALLERGY [Suspect]
     Active Substance: LORATADINE
     Indication: Rhinorrhoea
  5. CLARITIN ALLERGY [Suspect]
     Active Substance: LORATADINE
     Indication: Lacrimation increased

REACTIONS (2)
  - Drug effective for unapproved indication [None]
  - Drug ineffective [None]
